FAERS Safety Report 24360278 (Version 1)
Quarter: 2024Q3

REPORT INFORMATION
  Report Type: Spontaneous
  Country: US (occurrence: US)
  Receive Date: 20240925
  Receipt Date: 20240925
  Transmission Date: 20241017
  Serious: No
  Sender: ROCHE
  Company Number: US-ROCHE-10000089665

PATIENT
  Sex: Female

DRUGS (5)
  1. ACTEMRA [Suspect]
     Active Substance: TOCILIZUMAB
     Indication: Giant cell arteritis
     Route: 058
  2. HUMIRA [Concomitant]
     Active Substance: ADALIMUMAB
  3. LEVOTHYROXINE [Concomitant]
     Active Substance: LEVOTHYROXINE\LEVOTHYROXINE SODIUM
     Dosage: 50 MCG
  4. MODAFINIL [Concomitant]
     Active Substance: MODAFINIL
  5. OXYCODONE [Concomitant]
     Active Substance: OXYCODONE
     Dosage: TAB 10 - 32.5 MG

REACTIONS (2)
  - Drug ineffective [Unknown]
  - No adverse event [Unknown]
